FAERS Safety Report 9632756 (Version 2)
Quarter: 2014Q2

REPORT INFORMATION
  Report Type: Spontaneous
  Country: US (occurrence: US)
  Receive Date: 20131018
  Receipt Date: 20140401
  Transmission Date: 20141212
  Serious: Yes (Hospitalization)
  Sender: FDA-Public Use
  Company Number: US-B.I. PHARMACEUTICALS,INC./RIDGEFIELD-2013-BI-32757BP

PATIENT
  Sex: Female
  Weight: 49.4 kg

DRUGS (8)
  1. PRADAXA [Suspect]
     Indication: ATRIAL FIBRILLATION
     Dosage: 300 MG
     Route: 065
     Dates: start: 20110623, end: 20111112
  2. ATENOLOL [Concomitant]
     Dosage: 50 MG
     Route: 065
  3. SYNTHROID [Concomitant]
     Dosage: 50 MCG
     Route: 065
  4. LOSARTAN [Concomitant]
     Route: 065
  5. POTASSIUM [Concomitant]
     Dosage: 10 MEQ
     Route: 065
  6. PRILOSEC [Concomitant]
     Dosage: 20 MG
     Route: 065
  7. NORVASC [Concomitant]
     Dosage: 5 MG
     Route: 065
  8. LIPITOR [Concomitant]
     Dosage: 40 MG
     Route: 065

REACTIONS (4)
  - Gastrointestinal haemorrhage [Unknown]
  - Haemorrhagic anaemia [Unknown]
  - Coagulopathy [Unknown]
  - Dyspepsia [Unknown]
